FAERS Safety Report 8333519-1 (Version None)
Quarter: 2012Q2

REPORT INFORMATION
  Report Type: 
  Country: None (occurrence: None)
  Receive Date: 20120503
  Receipt Date: 20120425
  Transmission Date: 20120825
  Serious: Yes (Other)
  Sender: FDA-Public Use
  Company Number: IN-SANOFI-AVENTIS-2012SA029638

PATIENT
  Age: 26 Year
  Sex: Male

DRUGS (6)
  1. RIFAMPICIN [Suspect]
     Indication: PLEURAL EFFUSION
     Route: 065
  2. ISONIAZID [Concomitant]
     Indication: PLEURAL EFFUSION
  3. ETHAMBUTOL HYDROCHLORIDE [Concomitant]
  4. ISONIAZID [Concomitant]
  5. PYRAZINAMIDE [Concomitant]
     Indication: PLEURAL EFFUSION
  6. ETHAMBUTOL HYDROCHLORIDE [Concomitant]
     Indication: PLEURAL EFFUSION

REACTIONS (7)
  - GROIN PAIN [None]
  - COAGULATION TIME SHORTENED [None]
  - DEEP VEIN THROMBOSIS [None]
  - ANTITHROMBIN III DECREASED [None]
  - BLEEDING TIME SHORTENED [None]
  - SWELLING [None]
  - FIBRIN DEGRADATION PRODUCTS INCREASED [None]
